FAERS Safety Report 5047354-3 (Version None)
Quarter: 2006Q2

REPORT INFORMATION
  Report Type: 
  Country: None (occurrence: None)
  Receive Date: 20060601
  Receipt Date: 20060325
  Transmission Date: 20061013
  Serious: No
  Sender: FDA-Public Use
  Company Number: 2006PV010896

PATIENT
  Age: 55 Year
  Sex: Female
  Weight: 77.1115 kg

DRUGS (7)
  1. BYETTA [Suspect]
     Indication: DIABETES MELLITUS NON-INSULIN-DEPENDENT
     Dosage: 5 MCG;BID;SC
     Route: 058
     Dates: start: 20060322
  2. ACTOS [Concomitant]
  3. METFORMIN HCL [Concomitant]
  4. PRANDIN [Concomitant]
  5. ASPIRIN [Concomitant]
  6. UNIREC [Concomitant]
  7. NORVASC [Concomitant]

REACTIONS (5)
  - CHANGE OF BOWEL HABIT [None]
  - FEELING JITTERY [None]
  - INJECTION SITE HAEMORRHAGE [None]
  - NAUSEA [None]
  - THERAPEUTIC RESPONSE UNEXPECTED [None]
